FAERS Safety Report 7730588-4 (Version None)
Quarter: 2011Q3

REPORT INFORMATION
  Report Type: 
  Country: None (occurrence: None)
  Receive Date: 20110906
  Receipt Date: 20110823
  Transmission Date: 20111222
  Serious: Yes (Hospitalization, Other)
  Sender: FDA-Public Use
  Company Number: CA-JNJFOC-20110811952

PATIENT
  Age: 23 Year
  Sex: Female

DRUGS (4)
  1. CONCERTA [Suspect]
     Indication: ATTENTION DEFICIT/HYPERACTIVITY DISORDER
     Route: 048
  2. FLUOXETINE [Concomitant]
     Route: 065
  3. CONCERTA [Suspect]
     Route: 048
  4. CONCERTA [Suspect]
     Route: 048

REACTIONS (9)
  - POISONING [None]
  - AGITATION [None]
  - VISION BLURRED [None]
  - NAUSEA [None]
  - DIPLOPIA [None]
  - INTENTIONAL OVERDOSE [None]
  - HEADACHE [None]
  - DRUG DEPENDENCE [None]
  - INTENTIONAL DRUG MISUSE [None]
